FAERS Safety Report 9163515 (Version 2)
Quarter: 2013Q1

REPORT INFORMATION
  Report Type: Spontaneous
  Country: BR (occurrence: BR)
  Receive Date: 20130314
  Receipt Date: 20130320
  Transmission Date: 20140127
  Serious: Yes (Disabling)
  Sender: FDA-Public Use
  Company Number: PHHY2013BR025027

PATIENT
  Sex: Female

DRUGS (1)
  1. RITALINA [Suspect]
     Indication: DISTURBANCE IN ATTENTION
     Dosage: 2 DF, QD
     Route: 048

REACTIONS (5)
  - Movement disorder [Not Recovered/Not Resolved]
  - Memory impairment [Not Recovered/Not Resolved]
  - Feeling abnormal [Not Recovered/Not Resolved]
  - Injury [Not Recovered/Not Resolved]
  - Drug withdrawal syndrome [Not Recovered/Not Resolved]
